FAERS Safety Report 16879112 (Version 1)
Quarter: 2019Q4

REPORT INFORMATION
  Report Type: Report from Study
  Country: US (occurrence: US)
  Receive Date: 20191003
  Receipt Date: 20191003
  Transmission Date: 20200122
  Serious: Yes (Death, Hospitalization)
  Sender: FDA-Public Use
  Company Number: US-ROCHE-2422768

PATIENT
  Sex: Female

DRUGS (3)
  1. OCREVUS [Suspect]
     Active Substance: OCRELIZUMAB
     Dosage: ONGOING:NO
     Route: 042
     Dates: start: 20190502
  2. OCREVUS [Suspect]
     Active Substance: OCRELIZUMAB
     Indication: MULTIPLE SCLEROSIS
     Dosage: ONGOING YES?DATE OF TREATMENT:18-MAR-2019,02-MAY-2019
     Route: 042
     Dates: start: 20190418
  3. OCREVUS [Suspect]
     Active Substance: OCRELIZUMAB
     Route: 042
     Dates: start: 20190318

REACTIONS (4)
  - Hepatic failure [Unknown]
  - Pneumonia [Unknown]
  - Death [Fatal]
  - Sepsis [Unknown]
